FAERS Safety Report 24744359 (Version 3)
Quarter: 2025Q1

REPORT INFORMATION
  Report Type: Spontaneous
  Country: JP (occurrence: JP)
  Receive Date: 20241217
  Receipt Date: 20250308
  Transmission Date: 20250408
  Serious: Yes (Death)
  Sender: ABBVIE
  Company Number: JP-ABBVIE-6050160

PATIENT
  Age: 60 Year
  Sex: Male

DRUGS (1)
  1. HUMIRA [Suspect]
     Active Substance: ADALIMUMAB
     Indication: Colitis ulcerative
     Route: 058
     Dates: start: 20230301

REACTIONS (1)
  - Pancreatic carcinoma [Fatal]
